FAERS Safety Report 8904258 (Version 4)
Quarter: 2014Q2

REPORT INFORMATION
  Report Type: Spontaneous
  Country: US (occurrence: US)
  Receive Date: 20121112
  Receipt Date: 20140515
  Transmission Date: 20141212
  Serious: Yes (Hospitalization)
  Sender: FDA-Public Use
  Company Number: US-GLAXOSMITHKLINE-A0874328A

PATIENT
  Age: 52 Year
  Sex: Male
  Weight: 96.4 kg

DRUGS (1)
  1. AVANDIA [Suspect]
     Indication: DIABETES MELLITUS
     Dosage: 8MG PER DAY
     Route: 048

REACTIONS (9)
  - Cerebrovascular accident [Not Recovered/Not Resolved]
  - Pain [Unknown]
  - Hemiplegia [Unknown]
  - Hip fracture [Unknown]
  - Fall [Unknown]
  - Walking disability [Unknown]
  - Pain in extremity [Unknown]
  - Pain in extremity [Unknown]
  - Emergency care examination [Unknown]
